FAERS Safety Report 8094020-6 (Version None)
Quarter: 2012Q1

REPORT INFORMATION
  Report Type: 
  Country: None (occurrence: None)
  Receive Date: 20120131
  Receipt Date: 20120125
  Transmission Date: 20120608
  Serious: Yes (Life-Threatening, Hospitalization)
  Sender: FDA-Public Use
  Company Number: PHEH2012US001160

PATIENT
  Age: 50 Year
  Sex: Male

DRUGS (1)
  1. GILENYA [Suspect]
     Indication: MULTIPLE SCLEROSIS
     Dosage: 0.5 MG, QD
     Route: 048
     Dates: start: 20110901, end: 20120107

REACTIONS (15)
  - ENCEPHALITIS HERPES [None]
  - COMA [None]
  - CSF VIRUS IDENTIFIED [None]
  - RENAL FAILURE [None]
  - BLOOD UREA INCREASED [None]
  - LYMPHOCYTE COUNT DECREASED [None]
  - HERPES DERMATITIS [None]
  - BLOOD PRESSURE DECREASED [None]
  - CENTRAL NERVOUS SYSTEM LESION [None]
  - VIRAL VASCULITIS [None]
  - BLOOD CREATININE INCREASED [None]
  - CSF TEST ABNORMAL [None]
  - HERPES ZOSTER [None]
  - STATUS EPILEPTICUS [None]
  - CONVULSION [None]
